FAERS Safety Report 9772524 (Version 1)
Quarter: 2013Q4

REPORT INFORMATION
  Report Type: Spontaneous
  Country: US (occurrence: None)
  Receive Date: 20131218
  Receipt Date: 20131218
  Transmission Date: 20140711
  Serious: Yes (Other)
  Sender: FDA-Public Use
  Company Number: 2013CT000094

PATIENT
  Age: 36 Year
  Sex: Female

DRUGS (6)
  1. KORLYM [Suspect]
     Indication: PITUITARY-DEPENDENT CUSHING^S SYNDROME
     Dates: start: 20131007
  2. SPIRONOLACTONE [Concomitant]
  3. LISINOPRIL [Concomitant]
  4. GLUCOPHAGE [Concomitant]
  5. ESOMEPRAZOLE MAGNESIUM [Concomitant]
  6. LIPITOR BYSTOLIC [Concomitant]

REACTIONS (5)
  - Dyspnoea [None]
  - Nausea [None]
  - Retching [None]
  - Amenorrhoea [None]
  - Drug ineffective [None]
